FAERS Safety Report 5227439-9 (Version None)
Quarter: 2007Q1

REPORT INFORMATION
  Report Type: 
  Country: None (occurrence: None)
  Receive Date: 20061201
  Receipt Date: 20060927
  Transmission Date: 20070707
  Serious: No
  Sender: FDA-Public Use
  Company Number: US200609007015

PATIENT
  Age: 54 Year
  Sex: Female

DRUGS (4)
  1. CYMBALTA [Suspect]
     Indication: FIBROMYALGIA
     Dosage: 60 MG
     Dates: start: 20060923, end: 20060924
  2. ARTHROTEC [Concomitant]
  3. TYLENOL /USA/ (PARACETAMOL) [Concomitant]
  4. ZYRTEC [Concomitant]

REACTIONS (12)
  - ASTHENIA [None]
  - DIZZINESS [None]
  - DYSPEPSIA [None]
  - FEELING ABNORMAL [None]
  - HYPERHIDROSIS [None]
  - INSOMNIA [None]
  - NAUSEA [None]
  - PALLOR [None]
  - PALPITATIONS [None]
  - PARAESTHESIA [None]
  - SINUS HEADACHE [None]
  - VISION BLURRED [None]
